FAERS Safety Report 23179274 (Version 10)
Quarter: 2024Q3

REPORT INFORMATION
  Report Type: Spontaneous
  Country: US (occurrence: US)
  Receive Date: 20231113
  Receipt Date: 20240930
  Transmission Date: 20241016
  Serious: Yes (Hospitalization, Other)
  Sender: PFIZER
  Company Number: US-PFIZER INC-202300355456

PATIENT
  Age: 56 Year
  Sex: Female

DRUGS (6)
  1. OXBRYTA [Suspect]
     Active Substance: VOXELOTOR
     Indication: Sickle cell disease
     Dosage: 300 MG, 1X/DAY
     Route: 048
     Dates: start: 20231028
  2. OXBRYTA [Suspect]
     Active Substance: VOXELOTOR
     Dosage: 500MG, 2 TABLETS ONCE DAILY
     Route: 048
  3. OXBRYTA [Suspect]
     Active Substance: VOXELOTOR
     Dosage: 500MG, 3 TABLETS ONCE DAILY
     Route: 048
  4. OXBRYTA [Suspect]
     Active Substance: VOXELOTOR
     Dosage: 500MG, 2 TABLETS ONCE DAILY, ORALLY
     Route: 048
  5. OXBRYTA [Suspect]
     Active Substance: VOXELOTOR
     Dosage: 500MG, 2 TABLETS ONCE DAILY, ORALLY
     Route: 048
     Dates: start: 202311
  6. DECADRON [Suspect]
     Active Substance: DEXAMETHASONE
     Dosage: 4 MG (ONE TABLET BY MOUTH EVERY 8 HOURS FOR 14 DAYS)
     Route: 048

REACTIONS (6)
  - Dehydration [Unknown]
  - Brain tumour operation [Unknown]
  - Swelling face [Not Recovered/Not Resolved]
  - Condition aggravated [Not Recovered/Not Resolved]
  - Pain [Not Recovered/Not Resolved]
  - Off label use [Unknown]

NARRATIVE: CASE EVENT DATE: 20231001
